FAERS Safety Report 23865691 (Version 3)
Quarter: 2024Q2

REPORT INFORMATION
  Report Type: Spontaneous
  Country: JP (occurrence: JP)
  Receive Date: 20240517
  Receipt Date: 20240623
  Transmission Date: 20240716
  Serious: Yes (Other)
  Sender: FDA-Public Use
  Company Number: JP-002147023-NVSJ2024JP005857

PATIENT
  Age: 81 Year
  Sex: Female

DRUGS (5)
  1. ENTRESTO [Suspect]
     Active Substance: SACUBITRIL\VALSARTAN
     Indication: Hypertension
     Dosage: 200 MG
     Route: 048
     Dates: start: 20231118, end: 20240515
  2. DYPHYLLINE [Suspect]
     Active Substance: DYPHYLLINE
     Indication: Cough
     Dosage: UNK
     Route: 048
     Dates: start: 202403, end: 202405
  3. DYPHYLLINE [Suspect]
     Active Substance: DYPHYLLINE
     Indication: Productive cough
  4. PRAVASTATIN SODIUM [Concomitant]
     Active Substance: PRAVASTATIN SODIUM
     Indication: Dyslipidaemia
     Dosage: 5 MG
     Route: 065
     Dates: start: 20170623
  5. ZETIA [Concomitant]
     Active Substance: EZETIMIBE
     Indication: Dyslipidaemia
     Dosage: 10 MG
     Route: 048
     Dates: start: 20170623

REACTIONS (3)
  - Hepatic function abnormal [Recovering/Resolving]
  - Productive cough [Unknown]
  - Cough [Unknown]

NARRATIVE: CASE EVENT DATE: 20240515
